FAERS Safety Report 11469468 (Version 2)
Quarter: 2015Q3

REPORT INFORMATION
  Report Type: Spontaneous
  Country: US (occurrence: US)
  Receive Date: 20150903
  Receipt Date: 20150903
  Transmission Date: 20151125
  Serious: No
  Sender: FDA-Public Use
  Company Number: US-ELI_LILLY_AND_COMPANY-US201110002034

PATIENT
  Sex: Female

DRUGS (1)
  1. CYMBALTA [Suspect]
     Active Substance: DULOXETINE HYDROCHLORIDE

REACTIONS (6)
  - Insomnia [Unknown]
  - Disturbance in attention [Unknown]
  - Fear [Unknown]
  - Headache [Unknown]
  - Panic reaction [Unknown]
  - Anxiety [Unknown]
